FAERS Safety Report 8022927-4 (Version None)
Quarter: 2011Q4

REPORT INFORMATION
  Report Type: 
  Country: None (occurrence: None)
  Receive Date: 20111230
  Receipt Date: 20111216
  Transmission Date: 20120403
  Serious: Yes (Other)
  Sender: FDA-Public Use
  Company Number: 1000026545

PATIENT
  Age: 90 Year
  Sex: Female

DRUGS (10)
  1. TEBETANE COMPUESTO (ALANINE, GLUTAMIC ACID, GLYCINE, PRUNUS AFRICANA) [Suspect]
     Indication: URINARY INCONTINENCE
     Dosage: 3 DF (3 DOSAGE FORMS, 1 IN 1 D), ORAL
     Route: 048
     Dates: start: 20080101
  2. TARDYFERON (FERROUS SULFATE) (FERROUS SULFATE) [Concomitant]
  3. MEMANTINE HYDROCHLORIDE [Suspect]
     Indication: DEMENTIA ALZHEIMER'S TYPE
     Dosage: 20 MG (20 MG, 1 IN 1 D), ORAL
     Route: 048
     Dates: start: 20090101
  4. PARIET (RABEPRAZOLE SODIUM) (RABEPRAZOLE SODIUM) [Concomitant]
  5. ESCITALOPRAM OXALATE [Suspect]
     Indication: DEPRESSION
     Dosage: 15 MG (15 MG, 1 IN 1 D), ORAL
     Route: 048
     Dates: start: 20060101
  6. FLUIDASA (MEPIPHYLLINE) [Suspect]
     Indication: RESPIRATORY TRACT INFECTION
     Dosage: 30 ML (30 ML, 1 IN 1 D), ORAL
     Route: 048
     Dates: start: 20111105, end: 20111107
  7. SUTRIL NEO (TORASEMIDE) (TORASEMIDE) [Concomitant]
  8. BONIVA (IBANDRONATE SODIUM) (IBANDRONATE SODIUM) [Concomitant]
  9. LEKOVIT CA (CALCIUM CARBONATE, COLECALCIFEROL) (CALCIUM CARBONATE, COL [Concomitant]
  10. PRITOR (TELMISARTAN) (TELMISARTAN) [Concomitant]

REACTIONS (3)
  - DELIRIUM [None]
  - DRUG INTERACTION [None]
  - TREMOR [None]
